FAERS Safety Report 4602698-1 (Version None)
Quarter: 2005Q1

REPORT INFORMATION
  Report Type: 
  Country: None (occurrence: None)
  Receive Date: 20050307
  Receipt Date: 20050221
  Transmission Date: 20050727
  Serious: Yes (Other)
  Sender: FDA-Public Use
  Company Number: MED000033

PATIENT
  Age: 48 Year
  Sex: Female

DRUGS (1)
  1. LACTATED RINGER'S [Suspect]
     Indication: PREOPERATIVE CARE
     Dosage: 1000 ML; CONTINUOUS; INTRAVENOUS
     Route: 042
     Dates: start: 20050221, end: 20050221

REACTIONS (3)
  - BURNING SENSATION [None]
  - DYSPNOEA [None]
  - RASH ERYTHEMATOUS [None]
